FAERS Safety Report 22343001 (Version 4)
Quarter: 2023Q2

REPORT INFORMATION
  Report Type: Report from Study
  Country: CH (occurrence: None)
  Receive Date: 20230519
  Receipt Date: 20230623
  Transmission Date: 20230722
  Serious: Yes (Hospitalization)
  Sender: FDA-Public Use
  Company Number: CH-ROCHE-3351629

PATIENT
  Age: 71 Year
  Sex: Male

DRUGS (10)
  1. VENETOCLAX [Suspect]
     Active Substance: VENETOCLAX
     Indication: Chronic lymphocytic leukaemia
     Route: 048
     Dates: start: 20220705, end: 20230412
  2. OBINUTUZUMAB [Suspect]
     Active Substance: OBINUTUZUMAB
     Indication: Chronic lymphocytic leukaemia
     Route: 042
     Dates: start: 20220614, end: 20221108
  3. ATORVASTATIN [Concomitant]
     Active Substance: ATORVASTATIN
  4. OLMESARTAN [Concomitant]
     Active Substance: OLMESARTAN
  5. HYDROCHLOROTHIAZIDE [Concomitant]
     Active Substance: HYDROCHLOROTHIAZIDE
  6. ALLOPURINOL [Concomitant]
     Active Substance: ALLOPURINOL
  7. MAGNESIUM [Concomitant]
     Active Substance: MAGNESIUM
  8. PANTOPRAZOLE [Concomitant]
     Active Substance: PANTOPRAZOLE
  9. PHENPROCOUMONUM [Concomitant]
  10. RIVAROXABAN [Concomitant]
     Active Substance: RIVAROXABAN

REACTIONS (1)
  - Systemic inflammatory response syndrome [Recovered/Resolved with Sequelae]

NARRATIVE: CASE EVENT DATE: 20230516
